FAERS Safety Report 20538786 (Version 1)
Quarter: 2022Q1

REPORT INFORMATION
  Report Type: Spontaneous
  Country: US (occurrence: None)
  Receive Date: 20220302
  Receipt Date: 20220302
  Transmission Date: 20220423
  Serious: Yes (Hospitalization)
  Sender: FDA-Public Use
  Company Number: None

PATIENT
  Sex: Male

DRUGS (6)
  1. SPRYCEL [Suspect]
     Active Substance: DASATINIB
     Indication: Chronic myeloid leukaemia
     Dosage: TAKE 1 TABLET BY MOUTH EVERY DAY
     Route: 048
     Dates: start: 20211204
  2. SPRYCEL [Suspect]
     Active Substance: DASATINIB
     Indication: Philadelphia chromosome positive
  3. ASPIRIN LOW TAB 81MG [Concomitant]
  4. ATORVASTATIN TAB 80MG [Concomitant]
  5. BRILINTA TAB 90MG [Concomitant]
  6. METOPROL sue TAB 25MG ER [Concomitant]

REACTIONS (2)
  - Pleural effusion [None]
  - Therapy interrupted [None]
